FAERS Safety Report 24411327 (Version 1)
Quarter: 2024Q4

REPORT INFORMATION
  Report Type: Spontaneous
  Country: US (occurrence: None)
  Receive Date: 20241007
  Receipt Date: 20241007
  Transmission Date: 20250115
  Serious: Yes (Other)
  Sender: Public
  Company Number: None

PATIENT
  Age: 45 Year
  Sex: Female
  Weight: 63 kg

DRUGS (8)
  1. DOXYCYCLINE [Suspect]
     Active Substance: DOXYCYCLINE
     Indication: Uterine infection
     Dosage: FREQUENCY : TWICE A DAY;?
     Route: 048
     Dates: start: 20241002, end: 20241007
  2. LAMICTAL [Concomitant]
     Active Substance: LAMOTRIGINE
  3. NORTRIPTYLINE [Concomitant]
     Active Substance: NORTRIPTYLINE
  4. VITAMINS [Concomitant]
     Active Substance: VITAMINS
  5. FISH OIL [Concomitant]
     Active Substance: FISH OIL
  6. DIETARY SUPPLEMENT [Concomitant]
     Active Substance: DIETARY SUPPLEMENT
  7. PUMPKIN SEED OIL [Concomitant]
     Active Substance: PUMPKIN SEED OIL
  8. CHONDROITIN SULFATE (BOVINE)\GLUCOSAMINE HYDROCHLORIDE [Concomitant]
     Active Substance: CHONDROITIN SULFATE (BOVINE)\GLUCOSAMINE HYDROCHLORIDE

REACTIONS (4)
  - Urticaria [None]
  - Skin laxity [None]
  - Vulvovaginal swelling [None]
  - Vulvovaginal swelling [None]

NARRATIVE: CASE EVENT DATE: 20241005
